FAERS Safety Report 19679008 (Version 1)
Quarter: 2021Q3

REPORT INFORMATION
  Report Type: Report from Study
  Country: IL (occurrence: IL)
  Receive Date: 20210810
  Receipt Date: 20210810
  Transmission Date: 20211014
  Serious: Yes (Hospitalization, Other)
  Sender: FDA-Public Use
  Company Number: IL-ELI_LILLY_AND_COMPANY-IL202107013300

PATIENT
  Age: 89 Year
  Sex: Female

DRUGS (2)
  1. FORTEO [Suspect]
     Active Substance: TERIPARATIDE
     Indication: OSTEOPOROSIS
     Dosage: 20 UG, DAILY
     Route: 065
     Dates: start: 20200803, end: 20210605
  2. EXFORGE [Concomitant]
     Active Substance: AMLODIPINE BESYLATE\VALSARTAN
     Indication: HYPERTENSION

REACTIONS (13)
  - Hepatic failure [Unknown]
  - Asthenia [Recovering/Resolving]
  - Blood potassium decreased [Unknown]
  - Apathy [Unknown]
  - Hypokinesia [Recovering/Resolving]
  - Loss of consciousness [Recovered/Resolved]
  - Heart rate increased [Unknown]
  - Crying [Unknown]
  - Affective disorder [Unknown]
  - Blood sodium decreased [Recovering/Resolving]
  - Mental impairment [Unknown]
  - Hypertension [Recovered/Resolved]
  - Blood pressure decreased [Unknown]

NARRATIVE: CASE EVENT DATE: 202106
